FAERS Safety Report 5779216-8 (Version None)
Quarter: 2008Q2

REPORT INFORMATION
  Report Type: 
  Country: None (occurrence: None)
  Receive Date: 20080619
  Receipt Date: 20080612
  Transmission Date: 20081010
  Serious: Yes (Other)
  Sender: FDA-Public Use
  Company Number: GB-ASTRAZENECA-2008GB00734

PATIENT
  Age: 548 Month
  Sex: Female

DRUGS (4)
  1. SYMBICORT [Suspect]
     Indication: ASTHMA
     Dosage: 200/6 MCG
     Route: 055
     Dates: start: 20071018
  2. SYMBICORT [Suspect]
     Dosage: 400/12 MCG, 2 PUFFS TWICE DAILY
     Route: 055
     Dates: start: 20080316
  3. SYMBICORT [Suspect]
     Dosage: 400/12 MCG, 2 PUFFS TWICE DAILY
     Route: 055
  4. ALBUTEROL [Concomitant]
     Indication: ASTHMA

REACTIONS (2)
  - ASTHMA [None]
  - DEVICE MALFUNCTION [None]
